FAERS Safety Report 7803270-2 (Version None)
Quarter: 2011Q4

REPORT INFORMATION
  Report Type: 
  Country: None (occurrence: None)
  Receive Date: 20111007
  Receipt Date: 20110930
  Transmission Date: 20120403
  Serious: Yes (Hospitalization)
  Sender: FDA-Public Use
  Company Number: PHHY2011GB83881

PATIENT
  Age: 28 Year
  Sex: Female

DRUGS (3)
  1. CITALOPRAM HYDROBROMIDE [Suspect]
  2. CODEINE PHOSPHATE [Suspect]
     Dosage: 20 DF, UNK
     Route: 048
  3. ACETAMINOPHEN [Suspect]
     Dosage: 64 DF, UNK
     Route: 048

REACTIONS (3)
  - MULTIPLE DRUG OVERDOSE INTENTIONAL [None]
  - LOSS OF CONSCIOUSNESS [None]
  - DEPRESSION [None]
